FAERS Safety Report 18873163 (Version 2)
Quarter: 2021Q1

REPORT INFORMATION
  Report Type: Spontaneous
  Country: US (occurrence: US)
  Receive Date: 20210210
  Receipt Date: 20210309
  Transmission Date: 20210420
  Serious: No
  Sender: FDA-Public Use
  Company Number: US-PFIZER INC-2021116590

PATIENT
  Age: 76 Year
  Sex: Male

DRUGS (1)
  1. IBRANCE [Suspect]
     Active Substance: PALBOCICLIB
     Indication: BREAST CANCER MALE
     Dosage: 125 MG, CYCLIC (21 DAYS ON, 7 DAYS OFF ON A 8 DAYS CYCLE)
     Dates: start: 20210122

REACTIONS (2)
  - Pain [Recovering/Resolving]
  - White blood cell count abnormal [Unknown]
